FAERS Safety Report 5794557-6 (Version None)
Quarter: 2008Q2

REPORT INFORMATION
  Report Type: 
  Country: None (occurrence: None)
  Receive Date: 20080626
  Receipt Date: 20080611
  Transmission Date: 20081010
  Serious: Yes (Other)
  Sender: FDA-Public Use
  Company Number: 2008S1010319

PATIENT
  Sex: Female
  Weight: 103 kg

DRUGS (1)
  1. BISOPROLOL FUMARATE [Suspect]
     Indication: HYPERTENSION
     Dosage: 5 MG; ORAL
     Route: 048
     Dates: start: 20080306

REACTIONS (3)
  - ERYTHEMA [None]
  - PRURITUS [None]
  - RASH PUSTULAR [None]
